FAERS Safety Report 13306991 (Version 2)
Quarter: 2017Q1

REPORT INFORMATION
  Report Type: Report from Study
  Country: US (occurrence: US)
  Receive Date: 20170308
  Receipt Date: 20170331
  Transmission Date: 20170428
  Serious: Yes (Hospitalization, Other)
  Sender: FDA-Public Use
  Company Number: US-TAKEDA-2017TUS004601

PATIENT
  Age: 27 Year
  Sex: Male
  Weight: 142.4 kg

DRUGS (1)
  1. VEDOLIZUMAB [Suspect]
     Active Substance: VEDOLIZUMAB
     Indication: COLITIS ULCERATIVE
     Dosage: 300 MG, UNK
     Route: 042
     Dates: start: 201504

REACTIONS (4)
  - Influenza [Recovered/Resolved]
  - Cholecystectomy [Recovered/Resolved]
  - Liver abscess [Recovered/Resolved]
  - Post procedural bile leak [Unknown]

NARRATIVE: CASE EVENT DATE: 201610
